FAERS Safety Report 6882743-3 (Version None)
Quarter: 2010Q3

REPORT INFORMATION
  Report Type: 
  Country: None (occurrence: None)
  Receive Date: 20100729
  Receipt Date: 20100719
  Transmission Date: 20110219
  Serious: Yes (Hospitalization)
  Sender: FDA-Public Use
  Company Number: NL-ROCHE-716557

PATIENT
  Age: 60 Year
  Sex: Female

DRUGS (3)
  1. CAPECITABINE [Suspect]
     Indication: GASTRIC CANCER
     Dosage: PREOPERATIVE: 2 CYCLES
     Route: 065
  2. EPIRUBICIN [Suspect]
     Indication: GASTRIC CANCER
     Dosage: PREOPERATIVE: 2 CYCLES
     Route: 065
  3. CISPLATIN [Suspect]
     Indication: GASTRIC CANCER
     Dosage: PREOPERATIVE: 2 CYCLES
     Route: 065

REACTIONS (2)
  - FEBRILE NEUTROPENIA [None]
  - MUCOSAL INFLAMMATION [None]
